FAERS Safety Report 13553256 (Version 1)
Quarter: 2017Q2

REPORT INFORMATION
  Report Type: Spontaneous
  Country: IT (occurrence: IT)
  Receive Date: 20170517
  Receipt Date: 20170517
  Transmission Date: 20170830
  Serious: Yes (Other)
  Sender: FDA-Public Use
  Company Number: IT-ROCHE-1932407

PATIENT
  Sex: Male

DRUGS (2)
  1. SOVALDI [Suspect]
     Active Substance: SOFOSBUVIR
     Indication: HEPATITIS C
     Dosage: PERIOD: 168 DAYS
     Route: 065
     Dates: start: 2015, end: 2015
  2. RIBAVIRIN. [Suspect]
     Active Substance: RIBAVIRIN
     Indication: HEPATITIS C
     Dosage: PERIOD: 168 DAYS
     Route: 065
     Dates: start: 2015, end: 2015

REACTIONS (2)
  - Hepatitis C [Unknown]
  - Drug ineffective [Unknown]
